FAERS Safety Report 4528006-2 (Version None)
Quarter: 2004Q4

REPORT INFORMATION
  Report Type: 
  Country: None (occurrence: None)
  Receive Date: 20041123
  Receipt Date: 20040308
  Transmission Date: 20050328
  Serious: Yes (Disabling)
  Sender: FDA-Public Use
  Company Number: 2004016085

PATIENT
  Sex: Male

DRUGS (3)
  1. LIPITOR [Suspect]
     Indication: ILL-DEFINED DISORDER
  2. TRIZIVIR [Concomitant]
  3. EFAVIRENZ (EFAVIRENZ) [Concomitant]

REACTIONS (1)
  - DEAFNESS [None]
